FAERS Safety Report 8024454-7 (Version None)
Quarter: 2012Q1

REPORT INFORMATION
  Report Type: 
  Country: None (occurrence: None)
  Receive Date: 20120105
  Receipt Date: 20111228
  Transmission Date: 20120608
  Serious: Yes (Other)
  Sender: FDA-Public Use
  Company Number: GR-AMGEN-GRCSP2011058068

PATIENT
  Sex: Female

DRUGS (1)
  1. ENBREL [Suspect]
     Indication: RHEUMATOID ARTHRITIS
     Dosage: 50 MG, UNK
     Dates: start: 20110922

REACTIONS (4)
  - INJECTION SITE SWELLING [None]
  - RHEUMATOID ARTHRITIS [None]
  - INJECTION SITE IRRITATION [None]
  - INJECTION SITE PRURITUS [None]
